FAERS Safety Report 7637718-3 (Version None)
Quarter: 2011Q3

REPORT INFORMATION
  Report Type: 
  Country: None (occurrence: None)
  Receive Date: 20110727
  Receipt Date: 20110721
  Transmission Date: 20111222
  Serious: Yes (Hospitalization)
  Sender: FDA-Public Use
  Company Number: CA-BRISTOL-MYERS SQUIBB COMPANY-15916828

PATIENT
  Age: 88 Year
  Sex: Male

DRUGS (1)
  1. ONGLYZA [Suspect]
     Indication: TYPE 2 DIABETES MELLITUS
     Dosage: STARTED IN JAN/FEB 2011
     Route: 048
     Dates: start: 20110101

REACTIONS (3)
  - MEDICATION ERROR [None]
  - GLOMERULAR FILTRATION RATE DECREASED [None]
  - HYPERHIDROSIS [None]
